FAERS Safety Report 17984064 (Version 1)
Quarter: 2020Q3

REPORT INFORMATION
  Report Type: Spontaneous
  Country: JP (occurrence: JP)
  Receive Date: 20200706
  Receipt Date: 20200706
  Transmission Date: 20201103
  Serious: Yes (Other)
  Sender: FDA-Public Use
  Company Number: JP-PFIZER INC-2020255067

PATIENT
  Age: 81 Year
  Sex: Female

DRUGS (1)
  1. AZULFIDINE EN?TABS [Suspect]
     Active Substance: SULFASALAZINE
     Dosage: UNK
     Route: 048

REACTIONS (1)
  - Obstruction gastric [Unknown]
